FAERS Safety Report 8271386-5 (Version None)
Quarter: 2012Q2

REPORT INFORMATION
  Report Type: 
  Country: None (occurrence: None)
  Receive Date: 20120410
  Receipt Date: 20120301
  Transmission Date: 20120825
  Serious: No
  Sender: FDA-Public Use
  Company Number: US-NOVEN-12US004196

PATIENT
  Sex: Male

DRUGS (4)
  1. OXYCONTIN [Concomitant]
     Indication: BACK PAIN
  2. OXYCONTIN [Concomitant]
     Indication: NECK PAIN
     Dosage: PRN
     Route: 048
  3. FENTANYL CITRATE [Suspect]
     Indication: BACK PAIN
  4. FENTANYL CITRATE [Suspect]
     Indication: NECK PAIN
     Dosage: 100 UG/HR, Q 3 DAYS
     Route: 062
     Dates: start: 20120201

REACTIONS (4)
  - APPLICATION SITE IRRITATION [None]
  - PRODUCT QUALITY ISSUE [None]
  - APPLICATION SITE PRURITUS [None]
  - APPLICATION SITE RASH [None]
